FAERS Safety Report 14401872 (Version 1)
Quarter: 2018Q1

REPORT INFORMATION
  Report Type: Spontaneous
  Country: CH (occurrence: CH)
  Receive Date: 20180117
  Receipt Date: 20180117
  Transmission Date: 20180509
  Serious: Yes (Other)
  Sender: FDA-Public Use
  Company Number: CH-AMGEN-CHESP2017173179

PATIENT
  Age: 26 Year
  Sex: Female
  Weight: 56 kg

DRUGS (1)
  1. XGEVA [Suspect]
     Active Substance: DENOSUMAB
     Indication: BONE GIANT CELL TUMOUR BENIGN
     Dosage: 120 MG, Q4WK
     Route: 042
     Dates: start: 20140424, end: 201409

REACTIONS (8)
  - Bone disorder [Recovered/Resolved]
  - Incorrect route of drug administration [Unknown]
  - Impaired healing [Recovered/Resolved]
  - Neuralgia [Recovered/Resolved]
  - Off label use [Recovered/Resolved]
  - Pain [Recovered/Resolved]
  - Swelling [Unknown]
  - Nail disorder [Recovered/Resolved]

NARRATIVE: CASE EVENT DATE: 2014
